FAERS Safety Report 17412972 (Version 2)
Quarter: 2020Q1

REPORT INFORMATION
  Report Type: Spontaneous
  Country: US (occurrence: US)
  Receive Date: 20200213
  Receipt Date: 20200330
  Transmission Date: 20200409
  Serious: Yes (Other)
  Sender: FDA-Public Use
  Company Number: US-009507513-2002USA003194

PATIENT
  Sex: Male

DRUGS (11)
  1. COUMADIN [Concomitant]
     Active Substance: WARFARIN SODIUM
     Dosage: 750MG FRIDAY, BY MOUTH, ONCE A DAY
     Route: 048
  2. NITROGLYCERIN. [Concomitant]
     Active Substance: NITROGLYCERIN
     Indication: CHEST PAIN
     Dosage: DOSE UNSPECIFIED, AS NEEDED FOR WHENEVER, TABLET UNDER THE TONGUE
     Route: 060
  3. COUMADIN [Concomitant]
     Active Substance: WARFARIN SODIUM
     Indication: CARDIAC FAILURE CONGESTIVE
     Dosage: 500MG MONDAY, TUESDAY, WEDNESDAY, THURSDAY, SATURDAY, AND SUNDAY BY MOUTH, ONCE A DAY
     Route: 048
  4. LASIX [Concomitant]
     Active Substance: FUROSEMIDE
     Dosage: 20MG, ONCE A DAY, BY MOUTH
     Route: 048
  5. CARVIDOL [Concomitant]
     Dosage: 6.25MG, TWICE A DAY, BY MOUTH
     Route: 048
  6. PRALUENT [Concomitant]
     Active Substance: ALIROCUMAB
     Indication: BLOOD CHOLESTEROL ABNORMAL
     Dosage: 75MG, BY-MONTHLY
  7. TICE BCG [Suspect]
     Active Substance: BACILLUS CALMETTE-GUERIN SUBSTRAIN TICE LIVE ANTIGEN
     Indication: BLADDER CANCER
     Dosage: 6 TREATMENTS
  8. COUMADIN [Concomitant]
     Active Substance: WARFARIN SODIUM
     Dosage: 500MG MONDAY, TUESDAY, WEDNESDAY, THURSDAY, SATURDAY, AND SUNDAY BY MOUTH, ONCE A DAY
     Route: 048
     Dates: end: 20200323
  9. ENTRESTO [Concomitant]
     Active Substance: SACUBITRIL\VALSARTAN
     Dosage: 24-26MG, ONCE A DAY, BY MOUTH
     Route: 048
  10. DIGOXIN. [Concomitant]
     Active Substance: DIGOXIN
     Dosage: 125MG, EVERY OTHER DAY, BY MOUTH
     Route: 048
  11. PROSCAR [Concomitant]
     Active Substance: FINASTERIDE
     Dosage: 5MG, ONCE A DAY, BY MOUTH
     Route: 048

REACTIONS (1)
  - Bladder cancer recurrent [Unknown]
